FAERS Safety Report 19468735 (Version 2)
Quarter: 2022Q1

REPORT INFORMATION
  Report Type: Spontaneous
  Country: US (occurrence: US)
  Receive Date: 20210628
  Receipt Date: 20220302
  Transmission Date: 20220423
  Serious: No
  Sender: FDA-Public Use
  Company Number: US-PFIZER INC-2021508364

PATIENT
  Age: 45 Year
  Sex: Male

DRUGS (2)
  1. XELJANZ [Suspect]
     Active Substance: TOFACITINIB CITRATE
     Indication: Colitis ulcerative
     Dosage: 10 MG
  2. XELJANZ [Suspect]
     Active Substance: TOFACITINIB CITRATE
     Indication: Rectal haemorrhage
     Dosage: 10 MG, 2X/DAY
     Route: 048
     Dates: start: 201812

REACTIONS (2)
  - Condition aggravated [Unknown]
  - General physical health deterioration [Unknown]
